FAERS Safety Report 18689168 (Version 20)
Quarter: 2025Q1

REPORT INFORMATION
  Report Type: Report from Study
  Country: CO (occurrence: CO)
  Receive Date: 20201231
  Receipt Date: 20250228
  Transmission Date: 20250408
  Serious: Yes (Hospitalization, Other)
  Sender: TAKEDA
  Company Number: CO-SHIRE-CO202030721

PATIENT
  Age: 28 Year
  Sex: Male
  Weight: 82 kg

DRUGS (2)
  1. HUMAN IMMUNOGLOBULIN G\HYALURONIDASE RECOMBINANT HUMAN [Suspect]
     Active Substance: HUMAN IMMUNOGLOBULIN G\HYALURONIDASE (HUMAN RECOMBINANT)
     Indication: Primary immunodeficiency syndrome
     Dosage: 40 GRAM, MONTHLY
     Dates: start: 20191018
  2. HUMAN IMMUNOGLOBULIN G\HYALURONIDASE RECOMBINANT HUMAN [Suspect]
     Active Substance: HUMAN IMMUNOGLOBULIN G\HYALURONIDASE (HUMAN RECOMBINANT)
     Dosage: 40 GRAM, Q4WEEKS

REACTIONS (26)
  - Abscess jaw [Recovering/Resolving]
  - Deafness bilateral [Not Recovered/Not Resolved]
  - Influenza [Not Recovered/Not Resolved]
  - Incorrect product formulation administered [Unknown]
  - Inappropriate schedule of product administration [Unknown]
  - Product use issue [Unknown]
  - Treatment noncompliance [Unknown]
  - Insurance issue [Unknown]
  - Ear infection [Recovering/Resolving]
  - Fungal infection [Recovering/Resolving]
  - Weight increased [Not Recovered/Not Resolved]
  - Hypoacusis [Recovering/Resolving]
  - Parosmia [Recovering/Resolving]
  - Administration site pain [Recovering/Resolving]
  - Gingival abscess [Unknown]
  - Hyperaesthesia teeth [Unknown]
  - Product dose omission issue [Unknown]
  - Pain [Recovering/Resolving]
  - Nasal congestion [Recovering/Resolving]
  - Cough [Recovering/Resolving]
  - Abdominal pain [Recovered/Resolved]
  - Malaise [Unknown]
  - Diarrhoea [Recovered/Resolved]
  - Abdominal distension [Unknown]
  - Pyrexia [Recovering/Resolving]
  - Headache [Recovering/Resolving]

NARRATIVE: CASE EVENT DATE: 20200825
